FAERS Safety Report 13742066 (Version 1)
Quarter: 2017Q3

REPORT INFORMATION
  Report Type: Spontaneous
  Country: US (occurrence: US)
  Receive Date: 20170711
  Receipt Date: 20170711
  Transmission Date: 20171127
  Serious: Yes (Hospitalization)
  Sender: FDA-Public Use
  Company Number: None

PATIENT
  Age: 50 Year
  Sex: Female

DRUGS (1)
  1. CAPECITABINE 500MG TEVA [Suspect]
     Active Substance: CAPECITABINE
     Indication: PANCREATIC CARCINOMA
     Route: 048
     Dates: start: 20170502

REACTIONS (6)
  - Therapy cessation [None]
  - Fatigue [None]
  - Therapy change [None]
  - Blood glucose decreased [None]
  - Thrombosis [None]
  - Rash [None]

NARRATIVE: CASE EVENT DATE: 2017
